FAERS Safety Report 18607253 (Version 11)
Quarter: 2021Q2

REPORT INFORMATION
  Report Type: Report from Study
  Country: US (occurrence: US)
  Receive Date: 20201211
  Receipt Date: 20210630
  Transmission Date: 20210717
  Serious: Yes (Hospitalization)
  Sender: FDA-Public Use
  Company Number: US-EISAI MEDICAL RESEARCH-EC-2020-085151

PATIENT
  Age: 51 Year
  Sex: Female
  Weight: 92.2 kg

DRUGS (17)
  1. LENVATINIB [Suspect]
     Active Substance: LENVATINIB
     Dosage: FLUCTUATED DOSAGE
     Route: 048
     Dates: start: 20201214
  2. ATIVAN [Concomitant]
     Active Substance: LORAZEPAM
     Dates: start: 20200914
  3. LOMOTIL [Concomitant]
     Active Substance: ATROPINE SULFATE\DIPHENOXYLATE HYDROCHLORIDE
     Dates: start: 20201124, end: 20201126
  4. GABAPENTIN. [Concomitant]
     Active Substance: GABAPENTIN
     Dates: start: 19950101
  5. HYDROXYZINE HYDROCHLORIDE. [Concomitant]
     Active Substance: HYDROXYZINE HYDROCHLORIDE
     Dates: start: 20160206
  6. METHOCARBAMOL. [Concomitant]
     Active Substance: METHOCARBAMOL
     Dates: start: 20200519
  7. MELATONIN [Concomitant]
     Active Substance: MELATONIN
     Dates: start: 20200101
  8. PEMBROLIZUMAB. [Suspect]
     Active Substance: PEMBROLIZUMAB
     Indication: COLORECTAL CANCER
     Route: 041
     Dates: start: 20201123, end: 20201123
  9. PEMBROLIZUMAB. [Suspect]
     Active Substance: PEMBROLIZUMAB
     Route: 041
     Dates: start: 20201214
  10. ZOLPID [Concomitant]
     Dates: start: 20100101
  11. CITALOPRAM [Concomitant]
     Active Substance: CITALOPRAM HYDROBROMIDE
     Dates: start: 20050101
  12. TYLENOL [Concomitant]
     Active Substance: ACETAMINOPHEN
     Dates: start: 20200701
  13. TIZANIDINE HYDROCHLORIDE. [Concomitant]
     Active Substance: TIZANIDINE HYDROCHLORIDE
     Dates: start: 20160312
  14. PANTOPRAZOLE [Concomitant]
     Active Substance: PANTOPRAZOLE
     Dates: start: 20180101
  15. LENVATINIB [Suspect]
     Active Substance: LENVATINIB
     Indication: COLORECTAL CANCER
     Route: 048
     Dates: start: 20201123, end: 20201207
  16. OXYCONTIN [Concomitant]
     Active Substance: OXYCODONE HYDROCHLORIDE
     Dates: start: 20201005
  17. MECLIZINE [Concomitant]
     Active Substance: MECLIZINE HYDROCHLORIDE
     Dates: start: 20160331

REACTIONS (1)
  - Hypertensive emergency [Recovered/Resolved]

NARRATIVE: CASE EVENT DATE: 20201207
